FAERS Safety Report 24962733 (Version 3)
Quarter: 2025Q2

REPORT INFORMATION
  Report Type: Spontaneous
  Country: JP (occurrence: JP)
  Receive Date: 20250212
  Receipt Date: 20250627
  Transmission Date: 20250716
  Serious: Yes (Death, Other)
  Sender: BRISTOL-MYERS SQUIBB COMPANY
  Company Number: JP-ONO-2025JP002139

PATIENT
  Age: 83 Year
  Sex: Female
  Weight: 45.5 kg

DRUGS (1)
  1. OPDIVO [Suspect]
     Active Substance: NIVOLUMAB
     Indication: Non-small cell lung cancer recurrent
     Route: 041
     Dates: start: 20170307, end: 20170307

REACTIONS (1)
  - Thrombotic cerebral infarction [Fatal]

NARRATIVE: CASE EVENT DATE: 20170713
